FAERS Safety Report 13935460 (Version 1)
Quarter: 2017Q3

REPORT INFORMATION
  Report Type: Spontaneous
  Country: JP (occurrence: JP)
  Receive Date: 20170905
  Receipt Date: 20170905
  Transmission Date: 20171127
  Serious: Yes (Disabling)
  Sender: FDA-Public Use
  Company Number: PHHY2013JP173119

PATIENT
  Age: 22 Year
  Sex: Male
  Weight: 56 kg

DRUGS (19)
  1. NELARABINE [Suspect]
     Active Substance: NELARABINE
     Dosage: 1500 MG/M2, QOD
     Route: 042
     Dates: start: 20130204, end: 20130208
  2. DECADRON [Concomitant]
     Active Substance: DEXAMETHASONE
     Dosage: 33 MG,
     Route: 029
     Dates: start: 20130104, end: 20130104
  3. DECADRON [Concomitant]
     Active Substance: DEXAMETHASONE
     Dosage: 33 MG,
     Route: 029
     Dates: start: 20130205, end: 20130205
  4. GRANISETRON [Concomitant]
     Active Substance: GRANISETRON
     Dosage: UNK
     Route: 048
     Dates: start: 20130107, end: 20130111
  5. NELARABINE [Suspect]
     Active Substance: NELARABINE
     Dosage: 1500 MG/M2, QOD
     Route: 042
     Dates: start: 20121210, end: 20121214
  6. NELARABINE [Suspect]
     Active Substance: NELARABINE
     Dosage: 1500 MG/M2, QOD
     Route: 042
     Dates: start: 20130107, end: 20130111
  7. METHOTREXATE. [Concomitant]
     Active Substance: METHOTREXATE
     Indication: NEOPLASM MALIGNANT
     Dosage: 15 MG,
     Route: 029
     Dates: start: 20121207, end: 20121209
  8. METHOTREXATE. [Concomitant]
     Active Substance: METHOTREXATE
     Dosage: 15 MG,
     Route: 029
     Dates: start: 20130104, end: 20130104
  9. GRANISETRON [Concomitant]
     Active Substance: GRANISETRON
     Indication: PROPHYLAXIS OF NAUSEA AND VOMITING
     Dosage: UNK
     Route: 048
     Dates: start: 20121119, end: 20121123
  10. DECADRON [Concomitant]
     Active Substance: DEXAMETHASONE
     Indication: NEOPLASM MALIGNANT
     Dosage: 33 MG,
     Route: 029
     Dates: start: 20121207, end: 20121209
  11. TAKEPRON [Concomitant]
     Active Substance: LANSOPRAZOLE
     Indication: HAEMORRHAGE PROPHYLAXIS
     Dosage: UNK
     Route: 048
     Dates: start: 20121119, end: 20130306
  12. GRANISETRON [Concomitant]
     Active Substance: GRANISETRON
     Dosage: UNK
     Route: 048
     Dates: start: 20130204, end: 20130208
  13. GRANISETRON [Concomitant]
     Active Substance: GRANISETRON
     Dosage: UNK
     Route: 048
     Dates: start: 20130304, end: 20130306
  14. NELARABINE [Suspect]
     Active Substance: NELARABINE
     Indication: PRECURSOR T-LYMPHOBLASTIC LYMPHOMA/LEUKAEMIA
     Dosage: 1500 MG/M2, QOD
     Route: 042
     Dates: start: 20121119, end: 20121123
  15. NELARABINE [Suspect]
     Active Substance: NELARABINE
     Dosage: 1500 MG/M2, QOD
     Route: 042
     Dates: start: 20130304, end: 20130306
  16. GRANISETRON [Concomitant]
     Active Substance: GRANISETRON
     Dosage: UNK
     Route: 048
     Dates: start: 20121210, end: 20121214
  17. ITRIZOLE [Concomitant]
     Active Substance: ITRACONAZOLE
     Indication: PROPHYLAXIS
     Dosage: UNK
     Route: 048
     Dates: start: 20121119, end: 20130306
  18. BAKTAR [Concomitant]
     Active Substance: SULFAMETHOXAZOLE\TRIMETHOPRIM
     Indication: ANTIFUNGAL PROPHYLAXIS
     Dosage: UNK
     Route: 048
     Dates: start: 20121119, end: 20130306
  19. METHOTREXATE. [Concomitant]
     Active Substance: METHOTREXATE
     Dosage: 15 MG,
     Route: 029
     Dates: start: 20130205, end: 20130205

REACTIONS (4)
  - White blood cell count decreased [Recovered/Resolved]
  - Anaesthesia [Recovering/Resolving]
  - Nervous system disorder [Recovering/Resolving]
  - Neutrophil count decreased [Recovered/Resolved]

NARRATIVE: CASE EVENT DATE: 20130104
